FAERS Safety Report 9238714 (Version 1)
Quarter: 2013Q2

REPORT INFORMATION
  Report Type: Spontaneous
  Country: IE (occurrence: IE)
  Receive Date: 20130418
  Receipt Date: 20130418
  Transmission Date: 20140414
  Serious: Yes (Death)
  Sender: FDA-Public Use
  Company Number: IE-BRISTOL-MYERS SQUIBB COMPANY-18781450

PATIENT
  Sex: 0

DRUGS (1)
  1. ABATACEPT [Suspect]

REACTIONS (1)
  - Death [Fatal]
